FAERS Safety Report 24857610 (Version 7)
Quarter: 2025Q2

REPORT INFORMATION
  Report Type: Report from Study
  Country: US (occurrence: US)
  Receive Date: 20250117
  Receipt Date: 20250619
  Transmission Date: 20250716
  Serious: Yes (Other)
  Sender: TAKEDA
  Company Number: US-TAKEDA-2024TUS047626

PATIENT
  Age: 54 Year
  Sex: Male
  Weight: 118.1 kg

DRUGS (12)
  1. MOBOCERTINIB [Suspect]
     Active Substance: MOBOCERTINIB
     Indication: Non-small cell lung cancer recurrent
     Dosage: 160 MILLIGRAM, QD
     Dates: start: 20220830
  2. MOBOCERTINIB [Suspect]
     Active Substance: MOBOCERTINIB
     Indication: Lung neoplasm malignant
  3. NAPROSYN [Concomitant]
     Active Substance: NAPROXEN
     Indication: Arthralgia
     Dosage: 500 MILLIGRAM, TID
     Dates: start: 20220720
  4. NAPROSYN [Concomitant]
     Active Substance: NAPROXEN
     Indication: Prophylaxis
  5. COMPAZINE [Concomitant]
     Active Substance: PROCHLORPERAZINE MALEATE
     Indication: Nausea
  6. DIPROLENE AF [Concomitant]
     Active Substance: BETAMETHASONE DIPROPIONATE
     Indication: Rash
     Dosage: 0.05 PERCENT, BID
     Route: 061
     Dates: start: 20220513
  7. OXYGEN [Concomitant]
     Active Substance: OXYGEN
  8. BENZALKONIUM CHLORIDE\LIDOCAINE [Concomitant]
     Active Substance: BENZALKONIUM CHLORIDE\LIDOCAINE
     Route: 061
  9. KEFLEX [Concomitant]
     Active Substance: CEPHALEXIN
     Indication: Skin infection
     Dosage: 500 MILLIGRAM, TID
  10. ADVIL [Concomitant]
     Active Substance: IBUPROFEN
     Indication: Pain
  11. MOTRIN [Concomitant]
     Active Substance: IBUPROFEN
     Indication: Pain
  12. IMODIUM [Concomitant]
     Active Substance: LOPERAMIDE HYDROCHLORIDE
     Indication: Diarrhoea
     Dosage: 8 MILLIGRAM, QID

REACTIONS (8)
  - Muscle spasms [Recovering/Resolving]
  - Oedema [Not Recovered/Not Resolved]
  - Blood magnesium decreased [Not Recovered/Not Resolved]
  - Hypokalaemia [Not Recovered/Not Resolved]
  - Paronychia [Not Recovered/Not Resolved]
  - Rash [Not Recovered/Not Resolved]
  - Amylase increased [Not Recovered/Not Resolved]
  - Diarrhoea [Not Recovered/Not Resolved]

NARRATIVE: CASE EVENT DATE: 20221004
